FAERS Safety Report 9507375 (Version 1)
Quarter: 2013Q3

REPORT INFORMATION
  Report Type: Spontaneous
  Country: MX (occurrence: MX)
  Receive Date: 20130909
  Receipt Date: 20130909
  Transmission Date: 20140515
  Serious: Yes (Hospitalization)
  Sender: FDA-Public Use
  Company Number: MX-GENZYME-FABR-1003576

PATIENT
  Sex: Male

DRUGS (1)
  1. FABRAZYME [Suspect]
     Indication: FABRY^S DISEASE
     Dosage: UNK (3 VIALS PER INFUSION)
     Route: 042
     Dates: start: 20130805, end: 20130805

REACTIONS (1)
  - Infection [Recovered/Resolved]
